FAERS Safety Report 7240578-6 (Version None)
Quarter: 2011Q1

REPORT INFORMATION
  Report Type: 
  Country: None (occurrence: None)
  Receive Date: 20110124
  Receipt Date: 20110117
  Transmission Date: 20110831
  Serious: Yes (Life-Threatening, Hospitalization)
  Sender: FDA-Public Use
  Company Number: US-NOVOPROD-321798

PATIENT
  Sex: Female
  Weight: 208 kg

DRUGS (8)
  1. METFORMIN [Concomitant]
     Indication: TYPE 2 DIABETES MELLITUS
     Dosage: 2000 MG, QD
     Route: 048
     Dates: start: 20040101
  2. IDEG PDS290 [Suspect]
     Dosage: 20 U, QD
     Route: 058
     Dates: start: 20101202
  3. INSULATARD FLEXPEN HM(GE) [Suspect]
     Indication: TYPE 2 DIABETES MELLITUS
     Dosage: 20 U, QD
     Route: 058
     Dates: start: 20101117
  4. LASIX [Concomitant]
     Indication: HYPERTENSION
     Dosage: 40 MG, QD
     Route: 048
     Dates: start: 20030101
  5. COUMADIN [Concomitant]
     Indication: ATRIAL FIBRILLATION
     Dosage: 7.5 MG, QD
     Route: 048
     Dates: start: 20070101
  6. IDEG PDS290 [Suspect]
     Indication: TYPE 2 DIABETES MELLITUS
     Dosage: 24 U, QD
     Route: 058
     Dates: start: 20091119, end: 20101116
  7. COREG [Concomitant]
     Indication: HYPERTENSION
     Dosage: 50 MG, QD
     Route: 048
     Dates: start: 20030101
  8. ZOCOR [Concomitant]
     Indication: HYPERCHOLESTEROLAEMIA
     Dosage: 20 MG, QD
     Route: 048
     Dates: start: 20030101

REACTIONS (1)
  - CARDIAC FAILURE CONGESTIVE [None]
